FAERS Safety Report 9715249 (Version 1)
Quarter: 2013Q4

REPORT INFORMATION
  Report Type: Spontaneous
  Country: IT (occurrence: IT)
  Receive Date: 20131126
  Receipt Date: 20131126
  Transmission Date: 20140711
  Serious: Yes (Hospitalization)
  Sender: FDA-Public Use
  Company Number: IT-TEVA-444960ISR

PATIENT
  Age: 60 Year
  Sex: Male

DRUGS (8)
  1. IBUPROFENE [Suspect]
     Indication: PAIN
     Dosage: 2 DOSAGE FORMS DAILY;
     Route: 048
     Dates: start: 20130910, end: 20130929
  2. ACIDO ACETILSALICILICO [Interacting]
     Indication: MYOCARDIAL ISCHAEMIA
     Dosage: 100 MILLIGRAM DAILY;
     Route: 048
     Dates: start: 20130101, end: 20131001
  3. EFIENT [Interacting]
     Indication: MYOCARDIAL ISCHAEMIA
     Route: 048
     Dates: start: 20130101, end: 20131001
  4. ANGIZEM 20 MG [Concomitant]
     Dosage: PROLONGED-RELEASE HARD CAPSULE
     Dates: start: 20130928, end: 20131001
  5. ATORVASTATINA CALCIO TRIIDRATO [Concomitant]
  6. AMIODARONE CLORIDRATO [Concomitant]
  7. PANTOPRAZOLO SODICO [Concomitant]
     Dates: start: 20130928, end: 20131001
  8. VALSARTAN [Concomitant]

REACTIONS (3)
  - Anaemia [Recovering/Resolving]
  - Melaena [Recovering/Resolving]
  - Drug interaction [Recovering/Resolving]
